FAERS Safety Report 20839252 (Version 3)
Quarter: 2023Q2

REPORT INFORMATION
  Report Type: Report from Study
  Country: CA (occurrence: CA)
  Receive Date: 20220517
  Receipt Date: 20230516
  Transmission Date: 20230722
  Serious: Yes (Hospitalization)
  Sender: FDA-Public Use
  Company Number: CA-OTSUKA-2022_012043

PATIENT
  Age: 35 Year
  Sex: Female

DRUGS (2)
  1. ARIPIPRAZOLE [Suspect]
     Active Substance: ARIPIPRAZOLE
     Indication: Product used for unknown indication
     Dosage: 400 MG EVERY 3 WEEKS
     Route: 030
     Dates: start: 20210429
  2. ARIPIPRAZOLE [Suspect]
     Active Substance: ARIPIPRAZOLE
     Dosage: 400 MG EVERY 4 WEEKS
     Route: 030

REACTIONS (3)
  - Fibrosis [Unknown]
  - Psychotic disorder [Unknown]
  - Inappropriate schedule of product administration [Unknown]

NARRATIVE: CASE EVENT DATE: 20220428
